FAERS Safety Report 25159544 (Version 1)
Quarter: 2025Q2

REPORT INFORMATION
  Report Type: Spontaneous
  Country: FR (occurrence: FR)
  Receive Date: 20250404
  Receipt Date: 20250404
  Transmission Date: 20250717
  Serious: Yes (Other)
  Sender: BRISTOL MYERS SQUIBB
  Company Number: FR-BRISTOL-MYERS SQUIBB COMPANY-2025-048956

PATIENT
  Age: 71 Year

DRUGS (1)
  1. ADAGRASIB [Suspect]
     Active Substance: ADAGRASIB
     Indication: Lung adenocarcinoma

REACTIONS (4)
  - Pleurisy [Unknown]
  - Pericarditis [Unknown]
  - Interstitial lung disease [Unknown]
  - Dizziness [Unknown]
